FAERS Safety Report 14717869 (Version 1)
Quarter: 2018Q2

REPORT INFORMATION
  Report Type: Spontaneous
  Country: US (occurrence: US)
  Receive Date: 20180404
  Receipt Date: 20180404
  Transmission Date: 20180711
  Serious: No
  Sender: FDA-Public Use
  Company Number: US-SA-2018SA034324

PATIENT
  Age: 56 Year
  Sex: Female

DRUGS (3)
  1. DUPIXENT [Suspect]
     Active Substance: DUPILUMAB
     Indication: DERMATITIS ATOPIC
     Dosage: FREQUENCY : EVERY TWO WEEKS
     Route: 065
     Dates: start: 201801
  2. OTEZLA [Concomitant]
     Active Substance: APREMILAST
  3. DUPIXENT [Suspect]
     Active Substance: DUPILUMAB
     Indication: DERMATITIS ATOPIC
     Route: 065
     Dates: start: 20180105, end: 20180105

REACTIONS (7)
  - Alopecia [Not Recovered/Not Resolved]
  - Dermatitis [Recovering/Resolving]
  - Dandruff [Recovering/Resolving]
  - Condition aggravated [Not Recovered/Not Resolved]
  - Pruritus [Not Recovered/Not Resolved]
  - Tension headache [Recovering/Resolving]
  - Neuritis [Recovering/Resolving]
